FAERS Safety Report 20690945 (Version 1)
Quarter: 2022Q2

REPORT INFORMATION
  Report Type: Spontaneous
  Country: FR (occurrence: FR)
  Receive Date: 20220408
  Receipt Date: 20220408
  Transmission Date: 20220720
  Serious: Yes (Life-Threatening, Other)
  Sender: FDA-Public Use
  Company Number: None

PATIENT
  Age: 38 Year
  Sex: Female
  Weight: 59 kg

DRUGS (10)
  1. DEXAMETHASONE [Suspect]
     Active Substance: DEXAMETHASONE
     Indication: Prophylaxis of nausea and vomiting
     Dosage: 8 MILLIGRAM, TOTAL
     Route: 042
     Dates: start: 20220124, end: 20220124
  2. PHLOROGLUCINOL [Suspect]
     Active Substance: PHLOROGLUCINOL
     Indication: Pain
     Dosage: 80 MILLIGRAM, TOTAL
     Route: 042
     Dates: start: 20220124, end: 20220124
  3. ACETAMINOPHEN [Suspect]
     Active Substance: ACETAMINOPHEN
     Indication: Pain
     Dosage: 1 GRAM, TOTAL
     Route: 042
     Dates: start: 20220124, end: 20220124
  4. ALFENTANIL HYDROCHLORIDE [Suspect]
     Active Substance: ALFENTANIL HYDROCHLORIDE
     Indication: Induction of anaesthesia
     Dosage: 2 MILLIGRAM, TOTAL
     Route: 042
     Dates: start: 20220124, end: 20220124
  5. PROPOFOL LIPURO [Suspect]
     Active Substance: PROPOFOL
     Indication: Induction of anaesthesia
     Dosage: 280 MILLIGRAM, TOTAL
     Route: 042
     Dates: start: 20220124, end: 20220124
  6. DARUNAVIR [Concomitant]
     Active Substance: DARUNAVIR
     Dosage: UNK
  7. BACTRIM [Concomitant]
     Active Substance: SULFAMETHOXAZOLE\TRIMETHOPRIM
     Dosage: UNK
  8. RITONAVIR [Concomitant]
     Active Substance: RITONAVIR
     Dosage: UNK
  9. TENOFOVIR DISOPROXIL MALEATE [Concomitant]
     Active Substance: TENOFOVIR DISOPROXIL MALEATE
     Dosage: UNK
  10. EMTRICITABINE [Concomitant]
     Active Substance: EMTRICITABINE
     Dosage: UNK

REACTIONS (1)
  - Anaphylactic shock [Recovered/Resolved]

NARRATIVE: CASE EVENT DATE: 20220124
